FAERS Safety Report 10213706 (Version 1)
Quarter: 2014Q2

REPORT INFORMATION
  Report Type: Spontaneous
  Country: IN (occurrence: None)
  Receive Date: 20140530
  Receipt Date: 20140530
  Transmission Date: 20141212
  Serious: Yes (Other)
  Sender: FDA-Public Use
  Company Number: FK201402008

PATIENT
  Age: 26 Year
  Sex: Female
  Weight: 50 kg

DRUGS (3)
  1. FUROSEMIDE (MANUFACTURER UNKNOWN) (FUROSEMIDE) (FUROSEMIDE) [Suspect]
     Indication: ACUTE PULMONARY OEDEMA
     Dosage: 80 MG, LOADING DOSE
     Route: 042
  2. MORPHINE (MORPHINE) [Concomitant]
  3. DIGOXIN (DIGOXIN) [Concomitant]

REACTIONS (4)
  - Oligohydramnios [None]
  - Forceps delivery [None]
  - Wound dehiscence [None]
  - Exposure during pregnancy [None]
